FAERS Safety Report 8574207-6 (Version None)
Quarter: 2012Q3

REPORT INFORMATION
  Report Type: 
  Country: None (occurrence: None)
  Receive Date: 20120806
  Receipt Date: 20120727
  Transmission Date: 20120928
  Serious: Yes (Hospitalization)
  Sender: FDA-Public Use
  Company Number: JP-JNJFOC-20120704754

PATIENT
  Sex: Female

DRUGS (4)
  1. MICONAZOLE [Suspect]
     Route: 048
  2. ELPINAN [Concomitant]
     Indication: URTICARIA
     Route: 048
     Dates: start: 20120625
  3. CEFAZOLIN SODIUM [Concomitant]
     Indication: DIARRHOEA
     Route: 048
  4. MICONAZOLE [Suspect]
     Indication: VULVOVAGINAL CANDIDIASIS
     Route: 048
     Dates: start: 20120616, end: 20120623

REACTIONS (1)
  - ERYTHEMA MULTIFORME [None]
